FAERS Safety Report 12657319 (Version 2)
Quarter: 2017Q3

REPORT INFORMATION
  Report Type: Spontaneous
  Country: US (occurrence: US)
  Receive Date: 20160816
  Receipt Date: 20170818
  Transmission Date: 20171127
  Serious: No
  Sender: FDA-Public Use
  Company Number: US-ENDO PHARMACEUTICALS INC.-2016-001906

PATIENT
  Age: 52 Year
  Sex: Female
  Weight: 61.29 kg

DRUGS (4)
  1. GABAPENTIN. [Concomitant]
     Active Substance: GABAPENTIN
     Indication: SEIZURE
  2. SUMAVEL DOSEPRO [Suspect]
     Active Substance: SUMATRIPTAN SUCCINATE
     Indication: MIGRAINE
     Dosage: 6 MG INJECTION ONCE AT FIRST SIGN OF MIGRAINE AND MAY REPEAT DOSE IN 2 HOURS.
     Route: 058
     Dates: start: 2013
  3. KEPPRA [Concomitant]
     Active Substance: LEVETIRACETAM
     Indication: SEIZURE
  4. ULTRAM [Concomitant]
     Active Substance: TRAMADOL HYDROCHLORIDE
     Indication: PAIN

REACTIONS (3)
  - Endodontic procedure [Recovered/Resolved]
  - Drug effect decreased [Recovering/Resolving]
  - Tooth fracture [Unknown]

NARRATIVE: CASE EVENT DATE: 201512
